FAERS Safety Report 21670145 (Version 3)
Quarter: 2022Q4

REPORT INFORMATION
  Report Type: Spontaneous
  Country: None (occurrence: DE)
  Receive Date: 20221201
  Receipt Date: 20221212
  Transmission Date: 20230112
  Serious: Yes (Other)
  Sender: FDA-Public Use
  Company Number: DE-Ascend Therapeutics US, LLC-2135450

PATIENT
  Age: 46 Year
  Sex: Female

DRUGS (10)
  1. ESTROGEL [Suspect]
     Active Substance: ESTRADIOL
     Indication: Hot flush
     Route: 065
     Dates: start: 201604
  2. ESTROGEL [Suspect]
     Active Substance: ESTRADIOL
  3. ESTRADIOL HEMIHYDRATE [Suspect]
     Active Substance: ESTRADIOL HEMIHYDRATE
     Route: 065
     Dates: start: 201604
  4. ESTRADIOL HEMIHYDRATE [Suspect]
     Active Substance: ESTRADIOL HEMIHYDRATE
     Route: 065
  5. PROGESTERONE [Suspect]
     Active Substance: PROGESTERONE
     Route: 065
     Dates: start: 201604
  6. PROGESTERONE [Suspect]
     Active Substance: PROGESTERONE
     Route: 065
  7. ESTRIOL [Suspect]
     Active Substance: ESTRIOL
     Route: 067
  8. MELATONIN [Concomitant]
     Active Substance: MELATONIN
     Route: 065
  9. PROMETHAZINE [Concomitant]
     Active Substance: PROMETHAZINE HYDROCHLORIDE
     Route: 065
  10. SERTRALINE [Concomitant]
     Active Substance: SERTRALINE HYDROCHLORIDE
     Route: 065

REACTIONS (13)
  - Suicidal ideation [Unknown]
  - Alopecia [Recovered/Resolved]
  - Feeling of despair [Unknown]
  - Blood oestrogen increased [Unknown]
  - Vitamin D deficiency [Unknown]
  - Arthralgia [Unknown]
  - Sedation [Unknown]
  - Weight increased [Recovered/Resolved]
  - Depression [Unknown]
  - Product use issue [None]
  - Therapeutic product effect decreased [None]
  - Blood follicle stimulating hormone increased [Unknown]
  - Smear cervix abnormal [Unknown]

NARRATIVE: CASE EVENT DATE: 20170613
